FAERS Safety Report 4515078-4 (Version None)
Quarter: 2004Q4

REPORT INFORMATION
  Report Type: 
  Country: None (occurrence: None)
  Receive Date: 20041201
  Receipt Date: 20041123
  Transmission Date: 20050328
  Serious: Yes (Disabling)
  Sender: FDA-Public Use
  Company Number: US-MERCK-0411USA03837

PATIENT
  Age: 71 Year
  Sex: Male

DRUGS (9)
  1. VIOXX [Suspect]
     Indication: ARTHRALGIA
     Route: 048
     Dates: start: 20040101, end: 20040901
  2. VIOXX [Suspect]
     Indication: NEUROPATHY
     Route: 048
     Dates: start: 20040101, end: 20040901
  3. NEXIUM [Concomitant]
     Route: 065
  4. WARFARIN [Concomitant]
     Route: 065
  5. PRAVACHOL [Concomitant]
     Route: 065
  6. DIOVAN [Concomitant]
     Route: 065
  7. HYDROXYCHLOROQUINE SULFATE [Concomitant]
     Route: 065
  8. NEURONTIN [Concomitant]
     Route: 065
  9. PROBENECID [Concomitant]
     Route: 065

REACTIONS (2)
  - BALANCE DISORDER [None]
  - PAIN IN EXTREMITY [None]
